FAERS Safety Report 7808330-8 (Version None)
Quarter: 2011Q4

REPORT INFORMATION
  Report Type: 
  Country: None (occurrence: None)
  Receive Date: 20111012
  Receipt Date: 20110426
  Transmission Date: 20120403
  Serious: No
  Sender: FDA-Public Use
  Company Number: US-ENDO PHARMACEUTICALS INC.-PRHC20110002

PATIENT
  Sex: Male

DRUGS (3)
  1. PROPOXYPHENE HYDROCHLORIDE [Suspect]
     Indication: PRODUCT USED FOR UNKNOWN INDICATION
     Dosage: UNK
     Route: 048
     Dates: start: 19900101, end: 20100601
  2. PROPOXYPHENE NAPSYLATE AND ACETAMINOPHEN [Suspect]
     Indication: PRODUCT USED FOR UNKNOWN INDICATION
     Dosage: UNK
     Route: 048
     Dates: start: 19900101, end: 20100601
  3. PROPOXYPHENE HYDROCHLORIDE [Suspect]

REACTIONS (3)
  - CARDIAC ARREST [None]
  - ARRHYTHMIA [None]
  - MYOCARDIAL INFARCTION [None]
